FAERS Safety Report 8575137-6 (Version None)
Quarter: 2012Q3

REPORT INFORMATION
  Report Type: 
  Country: None (occurrence: None)
  Receive Date: 20120807
  Receipt Date: 20120802
  Transmission Date: 20120928
  Serious: Yes (Other)
  Sender: FDA-Public Use
  Company Number: US-PFIZER INC-2012189273

PATIENT
  Age: 54 Year
  Sex: Female
  Weight: 86.168 kg

DRUGS (7)
  1. BENAZEPRIL [Concomitant]
     Indication: HYPERTENSION
     Dosage: 20 MG, DAILY
  2. FOLIC ACID [Concomitant]
     Dosage: UNK
  3. TRIAMCINOLONE ACETONIDE [Concomitant]
     Indication: ECZEMA
     Dosage: UNK, 2X/DAY
  4. VITAMIN B-12 [Concomitant]
     Indication: VITAMIN B12 DECREASED
     Dosage: UNK
     Dates: start: 20120708
  5. SECTRAL [Concomitant]
     Indication: ARRHYTHMIA
     Dosage: 400 MG, 2X/DAY
  6. CHANTIX [Suspect]
     Indication: SMOKING CESSATION THERAPY
     Dosage: 1 MG, 2X/DAY
     Route: 048
     Dates: start: 20120710
  7. ASPIRIN [Concomitant]
     Indication: CARDIAC DISORDER
     Dosage: UNK,DAILY

REACTIONS (3)
  - RASH [None]
  - BURNING SENSATION [None]
  - PRURITUS [None]
